FAERS Safety Report 7027668-8 (Version None)
Quarter: 2010Q4

REPORT INFORMATION
  Report Type: 
  Country: None (occurrence: None)
  Receive Date: 20101004
  Receipt Date: 20100921
  Transmission Date: 20110411
  Serious: Yes (Hospitalization)
  Sender: FDA-Public Use
  Company Number: IR-WATSON-2010-13021

PATIENT
  Age: 26 Year
  Sex: Female

DRUGS (2)
  1. PROPRANOLOL [Suspect]
     Indication: POISONING
     Dosage: 3600 MG SINGLE, (90-40MG TABS)
     Route: 048
  2. PROPRANOLOL [Suspect]
     Indication: ANXIETY
     Dosage: 40 MG, DAILY
     Route: 048

REACTIONS (4)
  - BRADYCARDIA [None]
  - JOINT DISLOCATION [None]
  - OVERDOSE [None]
  - SHOCK [None]
